FAERS Safety Report 22216096 (Version 1)
Quarter: 2023Q2

REPORT INFORMATION
  Report Type: Report from Study
  Country: CA (occurrence: CA)
  Receive Date: 20230417
  Receipt Date: 20230417
  Transmission Date: 20230721
  Serious: Yes (Other)
  Sender: FDA-Public Use
  Company Number: CA-ABBVIE-18K-028-2589699-00

PATIENT
  Sex: Male

DRUGS (2)
  1. HUMIRA [Suspect]
     Active Substance: ADALIMUMAB
     Indication: Colitis ulcerative
     Dosage: FORM STRENGTH - 40 MG
     Route: 058
     Dates: start: 20160817
  2. HUMIRA [Suspect]
     Active Substance: ADALIMUMAB
     Dosage: FORM STRENGTH - 40 MG
     Route: 058

REACTIONS (8)
  - Haemorrhoids [Not Recovered/Not Resolved]
  - Malaise [Not Recovered/Not Resolved]
  - Onychomycosis [Not Recovered/Not Resolved]
  - Neoplasm malignant [Unknown]
  - Fungal skin infection [Not Recovered/Not Resolved]
  - Faeces hard [Not Recovered/Not Resolved]
  - Arthralgia [Unknown]
  - Faeces soft [Not Recovered/Not Resolved]

NARRATIVE: CASE EVENT DATE: 20180101
